FAERS Safety Report 9570119 (Version 1)
Quarter: 2013Q3

REPORT INFORMATION
  Report Type: Spontaneous
  Country: US (occurrence: US)
  Receive Date: 20130930
  Receipt Date: 20130930
  Transmission Date: 20140515
  Serious: No
  Sender: FDA-Public Use
  Company Number: US-AMGEN-USASP2013064765

PATIENT
  Age: 59 Year
  Sex: Female
  Weight: 98.87 kg

DRUGS (11)
  1. ENBREL [Suspect]
     Indication: PRODUCT USED FOR UNKNOWN INDICATION
     Dosage: 50 MG, QWK
     Route: 058
  2. CYMBALTA [Concomitant]
     Dosage: 20 MG, UNK
  3. NABUMETONE [Concomitant]
     Dosage: 500 MG, UNK
  4. GABAPENTIN [Concomitant]
     Dosage: 100 MG, UNK
  5. SIMVASTATIN [Concomitant]
     Dosage: 5 MG, UNK
  6. VITAMIN B12                        /00056201/ [Concomitant]
     Dosage: 50 MUG, UNK
  7. COQ 10 [Concomitant]
     Dosage: UNK
  8. VITAMIN D                          /00107901/ [Concomitant]
     Dosage: 400 UNIT, UNK
  9. KRILL OIL [Concomitant]
     Dosage: 300 MG, UNK
  10. BENICAR [Concomitant]
     Dosage: 5 MG, UNK
  11. VITAMIN B 6 [Concomitant]
     Dosage: 50 MG, UNK

REACTIONS (1)
  - Meniscus injury [Unknown]
